FAERS Safety Report 10335062 (Version 1)
Quarter: 2014Q3

REPORT INFORMATION
  Report Type: Spontaneous
  Country: US (occurrence: None)
  Receive Date: 20140722
  Receipt Date: 20140722
  Transmission Date: 20150326
  Serious: Yes (Disabling)
  Sender: FDA-Public Use
  Company Number: None

PATIENT
  Age: 34 Year
  Sex: Male
  Weight: 64.41 kg

DRUGS (1)
  1. ATIVAN [Suspect]
     Active Substance: LORAZEPAM
     Indication: NAUSEA
     Dosage: 1 DOSE ONCE DAILY TAKEN BY MOUTH
     Route: 048
     Dates: start: 20131127, end: 20140331

REACTIONS (11)
  - Hyperhidrosis [None]
  - Heart rate increased [None]
  - Insomnia [None]
  - Drug dependence [None]
  - Drug tolerance [None]
  - Anxiety [None]
  - Fatigue [None]
  - Tremor [None]
  - Headache [None]
  - Dysphoria [None]
  - Tachyphrenia [None]

NARRATIVE: CASE EVENT DATE: 20140721
